FAERS Safety Report 10109289 (Version 2)
Quarter: 2014Q3

REPORT INFORMATION
  Report Type: Spontaneous
  Country: US (occurrence: None)
  Receive Date: 20140421
  Receipt Date: 20140722
  Transmission Date: 20150326
  Serious: Yes (Other)
  Sender: FDA-Public Use
  Company Number: AEGR000337

PATIENT
  Age: 54 Year
  Sex: Female
  Weight: 65.8 kg

DRUGS (9)
  1. PLAVIX(CLOPIDOGREL BISULFATE) [Concomitant]
  2. RANEXA(RANOLAZINE) [Concomitant]
  3. CRESTOR(ROSUVASTATIN CALCIUM) [Concomitant]
  4. ISOSORBIDE (ISOSORBIDE) [Concomitant]
     Active Substance: ISOSORBIDE
  5. LISINOPRIL(LISINOPRIL) [Concomitant]
     Active Substance: LISINOPRIL
  6. JUXTAPID [Suspect]
     Active Substance: LOMITAPIDE MESYLATE
     Indication: TYPE IIA HYPERLIPIDAEMIA
     Route: 048
     Dates: start: 20131018
  7. ZETIA(EZETIMIBE) [Concomitant]
  8. ASPIRIN(ACETYLSALICYLIC ACID) [Concomitant]
     Active Substance: ASPIRIN
  9. BYSTOLIC(NEBIVOLOL HYDROCHLORIDE) [Concomitant]

REACTIONS (3)
  - Headache [None]
  - Liver function test abnormal [None]
  - Pain [None]

NARRATIVE: CASE EVENT DATE: 20140106
